FAERS Safety Report 5507610-9 (Version None)
Quarter: 2007Q4

REPORT INFORMATION
  Report Type: 
  Country: None (occurrence: None)
  Receive Date: 20071102
  Receipt Date: 20071024
  Transmission Date: 20080405
  Serious: Yes (Other)
  Sender: FDA-Public Use
  Company Number: 2007SP021618

PATIENT
  Age: 44 Year
  Sex: Male

DRUGS (1)
  1. INTRON A [Suspect]
     Indication: MALIGNANT MELANOMA

REACTIONS (8)
  - BRAIN NEOPLASM [None]
  - CONFUSIONAL STATE [None]
  - DYSARTHRIA [None]
  - DYSGEUSIA [None]
  - DYSPNOEA [None]
  - MASS [None]
  - MOOD ALTERED [None]
  - NEOPLASM RECURRENCE [None]
